FAERS Safety Report 13031543 (Version 2)
Quarter: 2017Q4

REPORT INFORMATION
  Report Type: Spontaneous
  Country: US (occurrence: US)
  Receive Date: 20161215
  Receipt Date: 20171212
  Transmission Date: 20180320
  Serious: No
  Sender: FDA-Public Use
  Company Number: US-BAUSCH-BL-2016-022073

PATIENT
  Sex: Male

DRUGS (3)
  1. PANTOPRAZOLE [Concomitant]
     Active Substance: PANTOPRAZOLE
     Indication: PRODUCT USED FOR UNKNOWN INDICATION
  2. SYPRINE [Suspect]
     Active Substance: TRIENTINE HYDROCHLORIDE
     Indication: COPPER METABOLISM DISORDER
     Route: 048
     Dates: start: 20160513
  3. LACTULOSE. [Concomitant]
     Active Substance: LACTULOSE
     Indication: PRODUCT USED FOR UNKNOWN INDICATION

REACTIONS (2)
  - Nausea [Not Recovered/Not Resolved]
  - Lethargy [Unknown]

NARRATIVE: CASE EVENT DATE: 2016
